FAERS Safety Report 7719348-8 (Version None)
Quarter: 2011Q3

REPORT INFORMATION
  Report Type: 
  Country: None (occurrence: None)
  Receive Date: 20110830
  Receipt Date: 20110817
  Transmission Date: 20111222
  Serious: Yes (Other)
  Sender: FDA-Public Use
  Company Number: US-ELI_LILLY_AND_COMPANY-US201108005817

PATIENT
  Weight: 3.429 kg

DRUGS (9)
  1. DULOXETINE HYDROCHLORIDE [Suspect]
     Indication: DEPRESSION
     Dosage: 60 MG, QD
     Route: 015
  2. NORMODYNE [Concomitant]
     Indication: HYPERTENSION
     Dosage: 100 MG, QD
     Route: 015
  3. ALIGN [Concomitant]
     Indication: IRRITABLE BOWEL SYNDROME
     Dosage: 4 MG, QD
     Route: 015
  4. PRENATAL VITAMINS                  /01549301/ [Concomitant]
     Indication: PREGNANCY
     Dosage: 800 UG, QD
     Route: 015
  5. OMEPRAZOLE [Concomitant]
     Indication: GASTROOESOPHAGEAL REFLUX DISEASE
     Dosage: 40 MG, QD
     Route: 015
  6. GLUCOSAMINE HYDROCHLORIDE [Concomitant]
     Indication: SUPPLEMENTATION THERAPY
     Dosage: 1500 MG, QD
     Route: 048
  7. METAMUCIL-2 [Concomitant]
     Indication: IRRITABLE BOWEL SYNDROME
     Dosage: UNK, QD
     Route: 015
  8. TENORMIN [Concomitant]
     Indication: HYPERTENSION
     Dosage: 50 MG, QD
     Route: 015
  9. FERROUS SULFATE TAB [Concomitant]
     Indication: SUPPLEMENTATION THERAPY
     Dosage: 27 MG, QD
     Route: 015

REACTIONS (3)
  - HAEMATOCHEZIA [None]
  - EXPOSURE DURING BREAST FEEDING [None]
  - MATERNAL EXPOSURE DURING PREGNANCY [None]
